FAERS Safety Report 14303062 (Version 1)
Quarter: 2017Q4

REPORT INFORMATION
  Report Type: Spontaneous
  Country: JP (occurrence: JP)
  Receive Date: 20171219
  Receipt Date: 20171219
  Transmission Date: 20180321
  Serious: Yes (Hospitalization)
  Sender: FDA-Public Use
  Company Number: JP-BAUSCH-BL-2017-034175

PATIENT
  Age: 62 Year
  Sex: Female

DRUGS (2)
  1. FLUOROURACIL. [Suspect]
     Active Substance: FLUOROURACIL
     Indication: OESOPHAGEAL SQUAMOUS CELL CARCINOMA STAGE IV
     Dosage: DAY 1 TO 5 FOR 28 WEEKS AS 1 COURSE, 2 COURSES PERFORMED
     Route: 065
  2. CISPLATIN. [Suspect]
     Active Substance: CISPLATIN
     Indication: OESOPHAGEAL SQUAMOUS CELL CARCINOMA STAGE IV
     Dosage: DAY 1 TO 5 FOR 28 WEEKS AS 1 COURSE, 2 COURSES PERFORMED
     Route: 065

REACTIONS (1)
  - Bone marrow failure [Unknown]
